FAERS Safety Report 5680493-2 (Version None)
Quarter: 2008Q1

REPORT INFORMATION
  Report Type: 
  Country: None (occurrence: None)
  Receive Date: 20080326
  Receipt Date: 20080319
  Transmission Date: 20080703
  Serious: Yes (Hospitalization)
  Sender: FDA-Public Use
  Company Number: IT-ABBOTT-05P-083-0320353-00

PATIENT
  Sex: Female
  Weight: 53 kg

DRUGS (10)
  1. HUMIRA [Suspect]
     Indication: RHEUMATOID ARTHRITIS
     Route: 058
     Dates: start: 20050908, end: 20051007
  2. ESOMEPRAZOLE MAGNESIUM [Concomitant]
     Indication: PROPHYLAXIS AGAINST GASTROINTESTINAL ULCER
     Dates: start: 20051128, end: 20051210
  3. PREDNISONE TAB [Concomitant]
     Indication: RHEUMATOID ARTHRITIS
     Dates: start: 20051128, end: 20051210
  4. CALCITRIOL [Concomitant]
     Indication: OSTEOPOROSIS
     Dates: start: 20051010, end: 20051210
  5. BROMHEXINE HYDROCHLORIDE [Concomitant]
     Indication: COUGH
     Dates: start: 20051130
  6. SOLU-MEDROL [Concomitant]
     Indication: RHEUMATOID ARTHRITIS
     Dates: start: 20051204, end: 20051206
  7. RISEDRONATE SODIUM [Concomitant]
     Indication: OSTEOPOROSIS
  8. METHYLPREDNISOLONE [Concomitant]
     Indication: RHEUMATOID ARTHRITIS
     Dates: start: 20051010, end: 20051127
  9. METHYLPREDNISOLONE [Concomitant]
     Dates: start: 20051210
  10. OMEPRAZOLE [Concomitant]
     Indication: PROPHYLAXIS AGAINST GASTROINTESTINAL ULCER
     Dates: start: 20051010, end: 20051127

REACTIONS (5)
  - BONE PAIN [None]
  - FIBROMYALGIA [None]
  - MUSCULOSKELETAL CHEST PAIN [None]
  - PALPABLE PURPURA [None]
  - SPINAL FRACTURE [None]
